FAERS Safety Report 24523988 (Version 1)
Quarter: 2024Q4

REPORT INFORMATION
  Report Type: Spontaneous
  Country: US (occurrence: US)
  Receive Date: 20241018
  Receipt Date: 20241018
  Transmission Date: 20250115
  Serious: No
  Sender: SANOFI AVENTIS
  Company Number: US-SANOFI-02246358

PATIENT
  Age: 75 Year
  Sex: Female

DRUGS (1)
  1. DUPIXENT [Suspect]
     Active Substance: DUPILUMAB
     Indication: Neurodermatitis
     Dosage: 300 MG, QOW
     Dates: start: 20240204

REACTIONS (6)
  - Nodule [Unknown]
  - Night sweats [Unknown]
  - Skin lesion [Unknown]
  - Hair texture abnormal [Unknown]
  - Arthropod bite [Unknown]
  - Dilated pores [Unknown]
